FAERS Safety Report 8352422-4 (Version None)
Quarter: 2012Q2

REPORT INFORMATION
  Report Type: 
  Country: None (occurrence: None)
  Receive Date: 20120511
  Receipt Date: 20120502
  Transmission Date: 20120825
  Serious: Yes (Hospitalization, Disabling)
  Sender: FDA-Public Use
  Company Number: PHHY2012AU033010

PATIENT
  Sex: Male

DRUGS (3)
  1. CLOZARIL [Suspect]
     Indication: SCHIZOPHRENIA
     Dosage: 300 MG, UNK
     Route: 048
     Dates: start: 20030606
  2. QUETIAPINE FUMARATE [Concomitant]
     Indication: PSYCHOTIC DISORDER
     Dosage: 400 MG, UNK
     Route: 048
     Dates: start: 20120416
  3. CLOZARIL [Suspect]
     Dosage: UNK UKN, UNK
     Route: 048
     Dates: start: 20120418

REACTIONS (6)
  - AGGRESSION [None]
  - THOUGHT BLOCKING [None]
  - MENTAL DISORDER [None]
  - ANTIPSYCHOTIC DRUG LEVEL BELOW THERAPEUTIC [None]
  - ABNORMAL BEHAVIOUR [None]
  - SOCIAL AVOIDANT BEHAVIOUR [None]
